FAERS Safety Report 4733398-5 (Version None)
Quarter: 2005Q3

REPORT INFORMATION
  Report Type: 
  Country: None (occurrence: None)
  Receive Date: 20050801
  Receipt Date: 20050801
  Transmission Date: 20060218
  Serious: Yes (Life-Threatening, Hospitalization)
  Sender: FDA-Public Use
  Company Number: None

PATIENT
  Age: 52 Year
  Sex: Male
  Weight: 163 kg

DRUGS (20)
  1. PROVIGIL [Suspect]
     Indication: NARCOLEPSY
     Dosage: 200 MG PO QAM, 400 MG PO QAM
     Route: 048
     Dates: start: 20040701, end: 20050217
  2. PROVIGIL [Suspect]
     Indication: SLEEP APNOEA SYNDROME
     Dosage: 200 MG PO QAM, 400 MG PO QAM
     Route: 048
     Dates: start: 20040701, end: 20050217
  3. PROVIGIL [Suspect]
     Indication: NARCOLEPSY
     Dosage: 200 MG PO QAM, 400 MG PO QAM
     Route: 048
     Dates: start: 20050217, end: 20050220
  4. PROVIGIL [Suspect]
     Indication: SLEEP APNOEA SYNDROME
     Dosage: 200 MG PO QAM, 400 MG PO QAM
     Route: 048
     Dates: start: 20050217, end: 20050220
  5. ASPIRIN [Concomitant]
  6. PLAVIX [Concomitant]
  7. ZOCOR [Concomitant]
  8. FOSINOPRIL SODIUM [Concomitant]
  9. METOPROLOL [Concomitant]
  10. ISDN [Concomitant]
  11. SL NTG [Concomitant]
  12. IRBESARTAN [Concomitant]
  13. NIACIN [Concomitant]
  14. GEMFIBROZIL [Concomitant]
  15. OMEPRAZOLE [Concomitant]
  16. INSULIN [Concomitant]
  17. SYNTHROID [Concomitant]
  18. EFFEXOR [Concomitant]
  19. TOPAMAX [Concomitant]
  20. PERCOCET [Concomitant]

REACTIONS (2)
  - ACUTE MYOCARDIAL INFARCTION [None]
  - VENTRICULAR TACHYCARDIA [None]
